FAERS Safety Report 5170396-4 (Version None)
Quarter: 2006Q4

REPORT INFORMATION
  Report Type: 
  Country: None (occurrence: None)
  Receive Date: 20061204
  Receipt Date: 20061123
  Transmission Date: 20070319
  Serious: Yes (Hospitalization)
  Sender: FDA-Public Use
  Company Number: 2006110603

PATIENT
  Age: 63 Year
  Sex: Male
  Weight: 89.6 kg

DRUGS (2)
  1. SUTENT [Suspect]
     Indication: METASTATIC RENAL CELL CARCINOMA
     Dosage: (50 MG, 4 IN 1 D), ORAL
     Route: 048
     Dates: start: 20060816, end: 20060906
  2. SUTENT [Suspect]
     Indication: RENAL CELL CARCINOMA STAGE UNSPECIFIED
     Dosage: (50 MG, 4 IN 1 D), ORAL
     Route: 048
     Dates: start: 20060816, end: 20060906

REACTIONS (3)
  - HICCUPS [None]
  - ORAL INTAKE REDUCED [None]
  - RENAL FAILURE ACUTE [None]
